FAERS Safety Report 13130880 (Version 1)
Quarter: 2017Q1

REPORT INFORMATION
  Report Type: Report from Study
  Country: CA (occurrence: CA)
  Receive Date: 20170119
  Receipt Date: 20170119
  Transmission Date: 20170428
  Serious: No
  Sender: FDA-Public Use
  Company Number: CA-JNJFOC-20170112618

PATIENT
  Age: 52 Year
  Sex: Male
  Weight: 90.72 kg

DRUGS (1)
  1. STELARA [Suspect]
     Active Substance: USTEKINUMAB
     Indication: PSORIASIS
     Route: 058
     Dates: start: 20161218

REACTIONS (4)
  - Fatigue [Unknown]
  - Blister [Recovered/Resolved]
  - Tremor [Unknown]
  - Dry skin [Unknown]

NARRATIVE: CASE EVENT DATE: 20161221
